FAERS Safety Report 4919682-0 (Version None)
Quarter: 2006Q1

REPORT INFORMATION
  Report Type: 
  Country: None (occurrence: None)
  Receive Date: 20060221
  Receipt Date: 20060208
  Transmission Date: 20060701
  Serious: Yes (Death, Hospitalization)
  Sender: FDA-Public Use
  Company Number: 2006019587

PATIENT
  Age: 77 Year
  Sex: Female

DRUGS (5)
  1. LIPITOR [Suspect]
     Indication: BLOOD CHOLESTEROL INCREASED
     Dosage: (20 MG), ORAL
     Route: 048
     Dates: start: 20051216, end: 20060115
  2. PANTOPRAZOLE SODIUM [Concomitant]
  3. CLOPIDOGREL BISULFATE [Concomitant]
  4. OROVITE (ASCORBIC ACID, NICOTINAMIDE, PYRIDOXINE HYDROCHLORIDE, RIBOFL [Concomitant]
  5. THIAMINE (THIAMINE) [Concomitant]

REACTIONS (3)
  - DIALYSIS [None]
  - RENAL FAILURE ACUTE [None]
  - RHABDOMYOLYSIS [None]
